FAERS Safety Report 4870179-6 (Version None)
Quarter: 2005Q4

REPORT INFORMATION
  Report Type: 
  Country: None (occurrence: None)
  Receive Date: 20051228
  Receipt Date: 20051215
  Transmission Date: 20060501
  Serious: Yes (Life-Threatening)
  Sender: FDA-Public Use
  Company Number: ES200512002928

PATIENT
  Age: 75 Year
  Sex: Female

DRUGS (2)
  1. FORTEO [Suspect]
     Indication: OSTEOPOROSIS
     Dosage: 20 UG, DAILY (1/D), SUBCUTANEOUS
     Route: 058
     Dates: start: 20050509
  2. FORTEO PEN (250MCG/ML) (FORTEO PEN (150MCG/ML (3ML) PEN, DISPOSABLE [Concomitant]

REACTIONS (1)
  - LYMPHOCYTIC LEUKAEMIA [None]
